FAERS Safety Report 16927580 (Version 3)
Quarter: 2019Q4

REPORT INFORMATION
  Report Type: Spontaneous
  Country: US (occurrence: US)
  Receive Date: 20191016
  Receipt Date: 20191028
  Transmission Date: 20200122
  Serious: Yes (Other)
  Sender: FDA-Public Use
  Company Number: US-SHIRE-US201933103

PATIENT
  Sex: Female
  Weight: 74.83 kg

DRUGS (2)
  1. VYVANSE [Suspect]
     Active Substance: LISDEXAMFETAMINE DIMESYLATE
     Dosage: 40 MILLIGRAM
     Route: 065
  2. VYVANSE [Suspect]
     Active Substance: LISDEXAMFETAMINE DIMESYLATE
     Indication: ATTENTION DEFICIT/HYPERACTIVITY DISORDER
     Dosage: 10MG OR 20MG
     Route: 065
     Dates: start: 2018, end: 201909

REACTIONS (27)
  - Somnolence [Unknown]
  - Dysarthria [Unknown]
  - Hangover [Unknown]
  - Dizziness postural [Unknown]
  - Abdominal pain upper [Unknown]
  - Pruritus [Unknown]
  - Myalgia [Unknown]
  - Paranoia [Unknown]
  - Fatigue [Unknown]
  - Psychotic disorder [Recovered/Resolved]
  - Malaise [Unknown]
  - Influenza like illness [Unknown]
  - Kidney infection [Unknown]
  - Disturbance in attention [Unknown]
  - Memory impairment [Unknown]
  - Diarrhoea [Unknown]
  - Dry mouth [None]
  - Stress [Unknown]
  - Abdominal pain [Unknown]
  - Therapeutic product effect incomplete [Unknown]
  - Feeling abnormal [Unknown]
  - Vomiting [Unknown]
  - Hallucination [Unknown]
  - Inappropriate schedule of product administration [Recovered/Resolved]
  - Back pain [Unknown]
  - Cystitis [Unknown]
  - Dizziness [Unknown]

NARRATIVE: CASE EVENT DATE: 2018
